FAERS Safety Report 8577127-6 (Version None)
Quarter: 2012Q2

REPORT INFORMATION
  Report Type: 
  Country: None (occurrence: None)
  Receive Date: 20120423
  Receipt Date: 20091111
  Transmission Date: 20120825
  Serious: Yes (Other)
  Sender: FDA-Public Use
  Company Number: PHEH2009US06245

PATIENT
  Sex: Male
  Weight: 89.3 kg

DRUGS (4)
  1. EXJADE [Suspect]
     Indication: IRON OVERLOAD
     Dosage: 750 MG, BID, ORAL
     Route: 048
     Dates: end: 20080501
  2. EXJADE [Suspect]
     Indication: IRON OVERLOAD
     Dosage: 750 MG, BID, ORAL
     Route: 048
     Dates: start: 20090512, end: 20090618
  3. EXJADE [Suspect]
     Indication: IRON OVERLOAD
     Dosage: 750 MG, BID, ORAL
     Route: 048
     Dates: start: 20090402
  4. COUMADIN [Concomitant]

REACTIONS (4)
  - ULCER HAEMORRHAGE [None]
  - HAEMOGLOBIN INCREASED [None]
  - SERUM FERRITIN INCREASED [None]
  - WEIGHT INCREASED [None]
